FAERS Safety Report 12514362 (Version 3)
Quarter: 2016Q4

REPORT INFORMATION
  Report Type: Spontaneous
  Country: US (occurrence: US)
  Receive Date: 20160630
  Receipt Date: 20161104
  Transmission Date: 20170207
  Serious: Yes (Hospitalization)
  Sender: FDA-Public Use
  Company Number: US-JNJFOC-20160528100

PATIENT
  Age: 76 Year
  Sex: Female
  Weight: 54.43 kg

DRUGS (3)
  1. XARELTO [Suspect]
     Active Substance: RIVAROXABAN
     Indication: ATRIAL FIBRILLATION
     Dosage: 15-20MG
     Route: 048
     Dates: start: 20141028, end: 20141214
  2. XARELTO [Suspect]
     Active Substance: RIVAROXABAN
     Indication: THROMBOSIS PROPHYLAXIS
     Dosage: 15-20MG
     Route: 048
     Dates: start: 20141028, end: 20141214
  3. XARELTO [Suspect]
     Active Substance: RIVAROXABAN
     Indication: CEREBROVASCULAR ACCIDENT PROPHYLAXIS
     Dosage: 15-20MG
     Route: 048
     Dates: start: 20141028, end: 20141214

REACTIONS (1)
  - Aortic intramural haematoma [Recovering/Resolving]

NARRATIVE: CASE EVENT DATE: 20141215
